FAERS Safety Report 4727724-0 (Version None)
Quarter: 2005Q3

REPORT INFORMATION
  Report Type: 
  Country: None (occurrence: None)
  Receive Date: 20050725
  Receipt Date: 20050504
  Transmission Date: 20060218
  Serious: No
  Sender: FDA-Public Use
  Company Number: USA050597312

PATIENT
  Age: 10 Year
  Sex: Male
  Weight: 74 kg

DRUGS (1)
  1. STRATTERA [Suspect]
     Indication: ATTENTION DEFICIT/HYPERACTIVITY DISORDER
     Dosage: 80 MG DAY

REACTIONS (4)
  - HIRSUTISM [None]
  - SOMNOLENCE [None]
  - VOMITING [None]
  - WEIGHT INCREASED [None]
